FAERS Safety Report 17739543 (Version 1)
Quarter: 2020Q2

REPORT INFORMATION
  Report Type: Spontaneous
  Country: US (occurrence: US)
  Receive Date: 20200501
  Receipt Date: 20200501
  Transmission Date: 20200714
  Serious: Yes (Death)
  Sender: FDA-Public Use
  Company Number: None

PATIENT
  Age: 22 Year
  Sex: Male

DRUGS (4)
  1. DEXAMETHASON [Concomitant]
     Active Substance: DEXAMETHASONE
  2. TEMOZOLOMIDE 180MG CAP [Suspect]
     Active Substance: TEMOZOLOMIDE
     Indication: BONE CANCER
     Route: 048
     Dates: start: 20200317, end: 20200427
  3. FAMOTIDINE. [Concomitant]
     Active Substance: FAMOTIDINE
  4. PHENYTOIN EX [Concomitant]

REACTIONS (1)
  - Death [None]

NARRATIVE: CASE EVENT DATE: 20200427
